FAERS Safety Report 18693055 (Version 1)
Quarter: 2021Q1

REPORT INFORMATION
  Report Type: Spontaneous
  Country: US (occurrence: US)
  Receive Date: 20210104
  Receipt Date: 20210104
  Transmission Date: 20210419
  Serious: Yes (Other)
  Sender: FDA-Public Use
  Company Number: US-CIPLA LTD.-2020US09511

PATIENT

DRUGS (6)
  1. CYCLOPHOSPHAMIDE. [Suspect]
     Active Substance: CYCLOPHOSPHAMIDE
     Indication: PLASMABLASTIC LYMPHOMA
     Dosage: UNK, DOSE?ADJUSTED V?EPOCH
     Route: 065
  2. VINCRISTINE [Suspect]
     Active Substance: VINCRISTINE
     Indication: PLASMABLASTIC LYMPHOMA
     Dosage: UNK, DOSE?ADJUSTED V?EPOCH
     Route: 065
  3. OCTREOTIDE. [Concomitant]
     Active Substance: OCTREOTIDE
     Indication: GORHAM^S DISEASE
     Dosage: UNK
     Route: 065
  4. PREDNISONE. [Suspect]
     Active Substance: PREDNISONE
     Indication: PLASMABLASTIC LYMPHOMA
     Dosage: UNK, DOSE?ADJUSTED V?EPOCH
     Route: 065
  5. ETOPOSIDE. [Suspect]
     Active Substance: ETOPOSIDE
     Indication: PLASMABLASTIC LYMPHOMA
     Dosage: UNK, DOSE?ADJUSTED V?EPOCH
     Route: 065
  6. DOXORUBICIN [Suspect]
     Active Substance: DOXORUBICIN
     Indication: PLASMABLASTIC LYMPHOMA
     Dosage: UNK, DOSE?ADJUSTED V?EPOCH
     Route: 065

REACTIONS (4)
  - Febrile neutropenia [Unknown]
  - Product use in unapproved indication [Unknown]
  - Small intestinal obstruction [Unknown]
  - Off label use [Unknown]
